FAERS Safety Report 7299653-2 (Version None)
Quarter: 2011Q1

REPORT INFORMATION
  Report Type: 
  Country: None (occurrence: None)
  Receive Date: 20110217
  Receipt Date: 20110203
  Transmission Date: 20110831
  Serious: Yes (Hospitalization)
  Sender: FDA-Public Use
  Company Number: US-CELGENEUS-163-20785-11020858

PATIENT
  Sex: Male

DRUGS (1)
  1. THALOMID [Suspect]
     Indication: MULTIPLE MYELOMA
     Route: 048
     Dates: start: 20110201

REACTIONS (6)
  - PYREXIA [None]
  - GLAUCOMA [None]
  - ARTHRALGIA [None]
  - PNEUMONIA [None]
  - RASH [None]
  - RENAL FAILURE [None]
